FAERS Safety Report 9438078 (Version 2)
Quarter: 2013Q3

REPORT INFORMATION
  Report Type: Spontaneous
  Country: RU (occurrence: RU)
  Receive Date: 20130802
  Receipt Date: 20130819
  Transmission Date: 20140515
  Serious: No
  Sender: FDA-Public Use
  Company Number: RU-009507513-1307RUS015575

PATIENT
  Sex: Female

DRUGS (2)
  1. NUVARING [Suspect]
     Indication: CONTRACEPTION
     Dosage: UNKNOWN
     Route: 067
     Dates: end: 201107
  2. NUVARING [Suspect]
     Dosage: UNKNOWN
     Route: 067
     Dates: start: 20130708

REACTIONS (5)
  - Breast fibrosis [Unknown]
  - Feeling abnormal [Unknown]
  - Metrorrhagia [Unknown]
  - Vaginal haemorrhage [Unknown]
  - Anaemia [Unknown]
